FAERS Safety Report 14268108 (Version 1)
Quarter: 2017Q4

REPORT INFORMATION
  Report Type: Report from Study
  Country: US (occurrence: US)
  Receive Date: 20171211
  Receipt Date: 20171211
  Transmission Date: 20180321
  Serious: Yes (Death)
  Sender: FDA-Public Use
  Company Number: PHEH2017US039824

PATIENT
  Sex: Female

DRUGS (2)
  1. ZARXIO [Suspect]
     Active Substance: FILGRASTIM-SNDZ
     Indication: AGRANULOCYTOSIS
  2. ZARXIO [Suspect]
     Active Substance: FILGRASTIM-SNDZ
     Indication: CHOLANGIOCARCINOMA
     Dosage: UNK
     Route: 065
     Dates: end: 20170212

REACTIONS (1)
  - Death [Fatal]

NARRATIVE: CASE EVENT DATE: 20170416
